FAERS Safety Report 19458614 (Version 1)
Quarter: 2021Q2

REPORT INFORMATION
  Report Type: Spontaneous
  Country: CA (occurrence: CA)
  Receive Date: 20210624
  Receipt Date: 20210624
  Transmission Date: 20210717
  Serious: Yes (Life-Threatening, Hospitalization, Other)
  Sender: FDA-Public Use
  Company Number: CA-BAYER-2021-159697

PATIENT
  Age: 56 Year
  Sex: Female
  Weight: 56 kg

DRUGS (3)
  1. RANITIDINE. [Concomitant]
     Active Substance: RANITIDINE
  2. VENLAFAXINE XR [Concomitant]
     Active Substance: VENLAFAXINE HYDROCHLORIDE
  3. ESTRADIOL. [Suspect]
     Active Substance: ESTRADIOL
     Indication: MENOPAUSE
     Dosage: 25 MG, OW
     Route: 003

REACTIONS (2)
  - Cardiac disorder [Recovered/Resolved]
  - Pulmonary embolism [Recovered/Resolved]
